FAERS Safety Report 9802830 (Version 1)
Quarter: 2014Q1

REPORT INFORMATION
  Report Type: Spontaneous
  Country: US (occurrence: None)
  Receive Date: 20140106
  Receipt Date: 20140106
  Transmission Date: 20141002
  Serious: Yes (Disabling)
  Sender: FDA-Public Use
  Company Number: None

PATIENT
  Age: 60 Year
  Sex: Male
  Weight: 79.38 kg

DRUGS (4)
  1. COLCRYS [Suspect]
     Indication: PAIN
     Dosage: 1 TWICE DAILY TWICE DAILY TAKEN BY MOUTH
     Route: 048
  2. COLCRYS [Suspect]
     Indication: LOCAL SWELLING
     Dosage: 1 TWICE DAILY TWICE DAILY TAKEN BY MOUTH
     Route: 048
  3. FOLIC ACID [Concomitant]
  4. GREEN TEA [Concomitant]

REACTIONS (3)
  - Product substitution issue [None]
  - Drug ineffective [None]
  - Economic problem [None]
